FAERS Safety Report 7502448-5 (Version None)
Quarter: 2011Q2

REPORT INFORMATION
  Report Type: 
  Country: None (occurrence: None)
  Receive Date: 20110525
  Receipt Date: 20110516
  Transmission Date: 20111010
  Serious: Yes (Other)
  Sender: FDA-Public Use
  Company Number: US-BAYER-2011-005740

PATIENT
  Age: 32 Year
  Sex: Female
  Weight: 74.37 kg

DRUGS (1)
  1. MIRENA [Suspect]
     Indication: CONTRACEPTION
     Dosage: 20 MCG/24HR, CONTINUOUS
     Route: 015
     Dates: start: 20101118, end: 20110113

REACTIONS (4)
  - UTERINE PERFORATION [None]
  - DEVICE DISLOCATION [None]
  - PROCEDURAL PAIN [None]
  - ABDOMINAL PAIN [None]
